FAERS Safety Report 9153049 (Version 1)
Quarter: 2013Q1

REPORT INFORMATION
  Report Type: Report from Study
  Country: US (occurrence: US)
  Receive Date: 20130311
  Receipt Date: 20130311
  Transmission Date: 20140127
  Serious: Yes (Other)
  Sender: FDA-Public Use
  Company Number: US-009507513-1303USA002724

PATIENT
  Sex: 0

DRUGS (4)
  1. SINEMET [Suspect]
     Indication: PARKINSON^S DISEASE
     Route: 048
  2. SINEMET [Suspect]
     Indication: ON AND OFF PHENOMENON
  3. CARBIDOPA (+) LEVODOPA [Suspect]
     Indication: PARKINSON^S DISEASE
  4. CARBIDOPA (+) LEVODOPA [Suspect]
     Indication: ON AND OFF PHENOMENON

REACTIONS (3)
  - Atrial fibrillation [Unknown]
  - Respiratory failure [Unknown]
  - Pneumonia [Unknown]
